FAERS Safety Report 6100233-2 (Version None)
Quarter: 2009Q1

REPORT INFORMATION
  Report Type: 
  Country: None (occurrence: None)
  Receive Date: 20090302
  Receipt Date: 20090302
  Transmission Date: 20090719
  Serious: No
  Sender: FDA-Public Use
  Company Number: None

PATIENT
  Sex: Male
  Weight: 92.9874 kg

DRUGS (1)
  1. KIONEX [Suspect]
     Indication: BLOOD POTASSIUM INCREASED
     Dosage: 4 TEASPOON ONE TIME A DAY PO
     Route: 048
     Dates: start: 20090201, end: 20090302

REACTIONS (1)
  - PRODUCT QUALITY ISSUE [None]
